FAERS Safety Report 5899549-4 (Version None)
Quarter: 2008Q3

REPORT INFORMATION
  Report Type: 
  Country: None (occurrence: None)
  Receive Date: 20080925
  Receipt Date: 20080925
  Transmission Date: 20090109
  Serious: Yes (Hospitalization)
  Sender: FDA-Public Use
  Company Number: None

PATIENT
  Sex: Female
  Weight: 54.4 kg

DRUGS (2)
  1. CARBOPLATIN [Suspect]
     Dosage: 606 MG
     Dates: end: 20080911
  2. PACLITAXEL [Suspect]
     Dosage: 264 MG
     Dates: end: 20080911

REACTIONS (4)
  - ASTHENIA [None]
  - CHILLS [None]
  - FATIGUE [None]
  - PYREXIA [None]
